FAERS Safety Report 23383089 (Version 1)
Quarter: 2024Q1

REPORT INFORMATION
  Report Type: Spontaneous
  Country: US (occurrence: None)
  Receive Date: 20240108
  Receipt Date: 20240108
  Transmission Date: 20240410
  Serious: Yes (Disabling)
  Sender: FDA-Public Use
  Company Number: None

PATIENT
  Age: 34 Year
  Sex: Female
  Weight: 90 kg

DRUGS (12)
  1. CEFADROXIL [Suspect]
     Active Substance: CEFADROXIL
     Indication: Postoperative wound infection
     Dosage: FREQUENCY : TWICE A DAY;?
     Route: 048
     Dates: start: 20240102, end: 20240104
  2. CAPLYTA [Concomitant]
     Active Substance: LUMATEPERONE
  3. Pallperidone [Concomitant]
  4. BISOPROLOL [Concomitant]
     Active Substance: BISOPROLOL\BISOPROLOL FUMARATE
  5. METFORMIN [Concomitant]
     Active Substance: METFORMIN HYDROCHLORIDE
  6. LAMOTRIGINE [Concomitant]
     Active Substance: LAMOTRIGINE
  7. TRAZODONE [Concomitant]
     Active Substance: TRAZODONE HYDROCHLORIDE
  8. TOPIRAMATE [Concomitant]
     Active Substance: TOPIRAMATE
  9. VITAMIN D [Concomitant]
     Active Substance: VITAMIN D NOS
  10. VITAMINS [Concomitant]
     Active Substance: VITAMINS
  11. IBUPROFEN [Concomitant]
     Active Substance: IBUPROFEN
  12. TYLENOL [Concomitant]
     Active Substance: ACETAMINOPHEN

REACTIONS (4)
  - Pruritus [None]
  - Erythema [None]
  - Eye pain [None]
  - Eyelid margin crusting [None]

NARRATIVE: CASE EVENT DATE: 20240103
